FAERS Safety Report 8432945-X (Version None)
Quarter: 2012Q2

REPORT INFORMATION
  Report Type: 
  Country: None (occurrence: None)
  Receive Date: 20120613
  Receipt Date: 20120531
  Transmission Date: 20120825
  Serious: Yes (Hospitalization)
  Sender: FDA-Public Use
  Company Number: JP-ROCHE-1070501

PATIENT
  Sex: Female
  Weight: 54.9 kg

DRUGS (9)
  1. NORVASC [Concomitant]
     Indication: HYPERTENSION
     Dosage: BEGINNING OF DOSAGE DAY: BEFORE TRIAL-
     Route: 048
  2. ONEALFA [Concomitant]
     Indication: OSTEOPOROSIS
     Route: 048
     Dates: start: 20101210
  3. CRESTOR [Concomitant]
     Indication: HYPERLIPIDAEMIA
     Route: 048
     Dates: start: 20110107
  4. ACTEMRA [Suspect]
     Route: 058
     Dates: start: 20100917
  5. PLACEBO [Suspect]
     Indication: RHEUMATOID ARTHRITIS
     Route: 042
     Dates: start: 20100917
  6. ACTEMRA [Suspect]
     Indication: RHEUMATOID ARTHRITIS
     Route: 058
     Dates: start: 20110304
  7. LANSOPRAZOLE [Concomitant]
     Indication: ADVERSE DRUG REACTION
     Route: 048
     Dates: start: 20120222
  8. LORFENAMIN [Concomitant]
     Indication: RHEUMATOID ARTHRITIS
     Route: 048
     Dates: start: 20120227
  9. GLAKAY [Concomitant]
     Indication: OSTEOPOROSIS
     Route: 048
     Dates: start: 20101210

REACTIONS (2)
  - ASTHMA [None]
  - BRONCHITIS [None]
